FAERS Safety Report 12998120 (Version 1)
Quarter: 2016Q4

REPORT INFORMATION
  Report Type: Spontaneous
  Country: US (occurrence: US)
  Receive Date: 20161205
  Receipt Date: 20161205
  Transmission Date: 20170207
  Serious: No
  Sender: FDA-Public Use
  Company Number: US-PFIZER INC-2016557575

PATIENT
  Age: 75 Year
  Sex: Female
  Weight: 52.15 kg

DRUGS (19)
  1. TYLENOL [Concomitant]
     Active Substance: ACETAMINOPHEN
     Dosage: UNK
  2. SUMATRIPTAN. [Concomitant]
     Active Substance: SUMATRIPTAN
     Indication: HEADACHE
     Dosage: UNK UNK, AS NEEDED (1/4 TO 1 TABLET)
     Dates: start: 20160702, end: 20160908
  3. VITAMIN D3 [Concomitant]
     Active Substance: CHOLECALCIFEROL
     Dosage: 2000 IU, DAILY
     Route: 048
     Dates: start: 20130509
  4. VALTREX [Concomitant]
     Active Substance: VALACYCLOVIR HYDROCHLORIDE
     Dosage: 500 MG, 2X/DAY
     Route: 048
     Dates: start: 20160815
  5. MAGNESIUM OXIDE. [Concomitant]
     Active Substance: MAGNESIUM OXIDE
     Dosage: 400 MG, DAILY
     Route: 048
     Dates: start: 20151005
  6. TOPROL XL [Concomitant]
     Active Substance: METOPROLOL SUCCINATE
     Dosage: 25 MG, 1X/DAY (BEDTIME)
     Dates: start: 20150922
  7. PRISTIQ EXTENDED-RELEASE [Suspect]
     Active Substance: DESVENLAFAXINE SUCCINATE
     Indication: INSOMNIA
     Dosage: UNK UNK, DAILY (1 - 2 TABLET)
     Route: 048
     Dates: start: 20160117, end: 20160908
  8. CALCIUM CARBONATE/MAGNESIUM HYDROXIDE [Concomitant]
     Dosage: 2 DF, DAILY [CALCIUM CARBONATE-333 MG]/[MAGNESIUM HYDROXIDE-167 MG]
     Route: 048
     Dates: start: 20130509
  9. MOTRIN [Concomitant]
     Active Substance: IBUPROFEN
     Dosage: UNK
  10. SIMVASTATIN. [Concomitant]
     Active Substance: SIMVASTATIN
     Dosage: 40 MG, 1X/DAY (IN THE EVENING)
     Route: 048
     Dates: start: 20150930
  11. PLAVIX [Concomitant]
     Active Substance: CLOPIDOGREL BISULFATE
     Dosage: 75 MG, DAILY
     Route: 048
     Dates: start: 20160301
  12. LOMOTIL [Concomitant]
     Active Substance: ATROPINE SULFATE\DIPHENOXYLATE HYDROCHLORIDE
     Dosage: 1 DF, UNK NO MORE THAN 5 A DAY [ATROPINE SULFATE-0.025 MG]/[DIPHENOXYLATE HYDROCHLORIDE-2.5 MG]
     Route: 048
     Dates: start: 20160307
  13. SUMATRIPTAN. [Concomitant]
     Active Substance: SUMATRIPTAN
     Dosage: UNK UNK, AS NEEDED (1/4 TO 1 TABLET)
     Dates: start: 20160908
  14. ESTRADIOL. [Concomitant]
     Active Substance: ESTRADIOL
     Dosage: 1 G, UNK (2 TIMES EVERY WEEK)
     Route: 067
     Dates: start: 20130625
  15. PRISTIQ EXTENDED-RELEASE [Suspect]
     Active Substance: DESVENLAFAXINE SUCCINATE
     Dosage: UNK UNK, DAILY (1 - 2 TABLET)
     Route: 048
     Dates: start: 20160908
  16. TRAZODONE [Concomitant]
     Active Substance: TRAZODONE HYDROCHLORIDE
     Indication: INSOMNIA
     Dosage: UNK UNK, 1X/DAY (TAKE 1/2-1, AT BEDTIME)
     Route: 048
  17. PRISTIQ EXTENDED-RELEASE [Suspect]
     Active Substance: DESVENLAFAXINE SUCCINATE
     Dosage: 75 MG, DAILY (1 1/2 TABS)
     Route: 048
     Dates: start: 2016, end: 2016
  18. DETROL [Concomitant]
     Active Substance: TOLTERODINE TARTRATE
     Dosage: 2 MG, 2X/DAY
     Route: 048
     Dates: start: 20160307, end: 20160908
  19. AMBIEN [Concomitant]
     Active Substance: ZOLPIDEM TARTRATE
     Dosage: 5 MG, 1X/DAY (AT BEDTIME)
     Route: 048
     Dates: start: 20160816, end: 20160908

REACTIONS (3)
  - Intentional product misuse [Unknown]
  - Mood altered [Unknown]
  - Weight decreased [Unknown]
